FAERS Safety Report 6021731-6 (Version None)
Quarter: 2008Q4

REPORT INFORMATION
  Report Type: 
  Country: None (occurrence: None)
  Receive Date: 20081223
  Receipt Date: 20081217
  Transmission Date: 20090506
  Serious: Yes (Life-Threatening)
  Sender: FDA-Public Use
  Company Number: GXBR2008US02344

PATIENT
  Age: 53 Year
  Sex: Male

DRUGS (4)
  1. TERAZOSIN HCL [Suspect]
     Indication: PROSTATIC DISORDER
     Dosage: 1 MG, QHS, ORAL; 2 MG, QHS, ORAL
     Route: 048
  2. NYSTATIN [Concomitant]
  3. THYROID TAB [Concomitant]
  4. TERAZOSIN HCL [Suspect]
     Dosage: 2MG QHS, ORAL

REACTIONS (1)
  - AUTONOMIC DYSREFLEXIA [None]
